FAERS Safety Report 5663245-9 (Version None)
Quarter: 2008Q1

REPORT INFORMATION
  Report Type: 
  Country: None (occurrence: None)
  Receive Date: 20080313
  Receipt Date: 20080301
  Transmission Date: 20080703
  Serious: Yes (Other)
  Sender: FDA-Public Use
  Company Number: FI-PFIZER INC-2008020260

PATIENT
  Age: 29 Year
  Sex: Female

DRUGS (4)
  1. CHANTIX [Suspect]
     Route: 048
  2. LAMICTAL [Concomitant]
     Indication: EPILEPSY
     Route: 048
  3. ORAL CONTRACEPTIVE NOS [Concomitant]
     Route: 048
  4. SELOKEN [Concomitant]
     Indication: MIGRAINE
     Route: 048

REACTIONS (3)
  - EPILEPSY [None]
  - HEADACHE [None]
  - NIGHTMARE [None]
